FAERS Safety Report 20650839 (Version 2)
Quarter: 2022Q2

REPORT INFORMATION
  Report Type: Spontaneous
  Country: US (occurrence: US)
  Receive Date: 20220329
  Receipt Date: 20220418
  Transmission Date: 20220721
  Serious: Yes (Hospitalization, Other)
  Sender: FDA-Public Use
  Company Number: US-RIGEL PHARMACEUTICALS, INC.-2022FOS000211

PATIENT
  Sex: Female
  Weight: 106.98 kg

DRUGS (1)
  1. TAVALISSE [Suspect]
     Active Substance: FOSTAMATINIB
     Indication: Immune thrombocytopenia
     Dosage: 100 MG, BID
     Route: 048

REACTIONS (5)
  - Urinary tract infection [Unknown]
  - Urosepsis [Unknown]
  - Spinal fracture [Unknown]
  - Muscle spasms [Unknown]
  - Diarrhoea [Unknown]
